FAERS Safety Report 8718862 (Version 4)
Quarter: 2013Q3

REPORT INFORMATION
  Report Type: Report from Study
  Country: EC (occurrence: EC)
  Receive Date: 20120810
  Receipt Date: 20130828
  Transmission Date: 20140515
  Serious: Yes (Hospitalization, Other)
  Sender: FDA-Public Use
  Company Number: PHHY2012EC068865

PATIENT
  Age: 47 Year
  Sex: Female

DRUGS (1)
  1. EXFORGE [Suspect]
     Indication: HYPERTENSION
     Dosage: 1 DF (160/5 MG), DAILY
     Route: 048
     Dates: start: 20110712

REACTIONS (5)
  - Ankle fracture [Recovering/Resolving]
  - Fall [Recovering/Resolving]
  - Overweight [Unknown]
  - Sinusitis [Unknown]
  - Hypersensitivity [Unknown]
